FAERS Safety Report 24773056 (Version 1)
Quarter: 2024Q4

REPORT INFORMATION
  Report Type: Report from Study
  Country: EG (occurrence: EG)
  Receive Date: 20241225
  Receipt Date: 20241225
  Transmission Date: 20250114
  Serious: Yes (Life-Threatening, Hospitalization)
  Sender: AMGEN
  Company Number: EG-AMGEN-EGYSL2024253175

PATIENT
  Age: 59 Year
  Sex: Male

DRUGS (1)
  1. VECTIBIX [Suspect]
     Active Substance: PANITUMUMAB
     Indication: Colon cancer
     Dosage: UNK UNK, Q2WK
     Route: 065
     Dates: start: 20241001

REACTIONS (2)
  - Fatigue [Not Recovered/Not Resolved]
  - Miliaria [Recovering/Resolving]

NARRATIVE: CASE EVENT DATE: 20241001
